FAERS Safety Report 18374979 (Version 2)
Quarter: 2020Q4

REPORT INFORMATION
  Report Type: Spontaneous
  Country: US (occurrence: US)
  Receive Date: 20201013
  Receipt Date: 20201021
  Transmission Date: 20210114
  Serious: Yes (Other)
  Sender: FDA-Public Use
  Company Number: US-SPECGX-T202002028

PATIENT
  Age: 96 Year
  Sex: Male
  Weight: 61 kg

DRUGS (4)
  1. HYDROCODONE/ACETAMINOPHEN [Suspect]
     Active Substance: ACETAMINOPHEN\HYDROCODONE
     Indication: SPINAL STENOSIS
     Dosage: UNK, 2-3 TIMES A DAY
     Route: 048
     Dates: end: 2020
  2. FENTANYL TRANSDERMAL SYSTEM [Suspect]
     Active Substance: FENTANYL
     Indication: SPINAL STENOSIS
     Dosage: UNK, AT EVERY 72 HOURS
     Route: 062
     Dates: start: 20200910, end: 20200922
  3. FENTANYL TRANSDERMAL SYSTEM [Suspect]
     Active Substance: FENTANYL
     Indication: PAIN
  4. OMEPRAZOLE. [Concomitant]
     Active Substance: OMEPRAZOLE
     Indication: PRODUCT USED FOR UNKNOWN INDICATION
     Dosage: UNK
     Route: 065

REACTIONS (7)
  - Spinal operation [Unknown]
  - Gait disturbance [Unknown]
  - Drug ineffective [Unknown]
  - Tenderness [Unknown]
  - Oedema peripheral [Not Recovered/Not Resolved]
  - Musculoskeletal stiffness [Unknown]
  - Spinal disorder [Unknown]

NARRATIVE: CASE EVENT DATE: 202005
